FAERS Safety Report 7439861-0 (Version None)
Quarter: 2011Q2

REPORT INFORMATION
  Report Type: 
  Country: None (occurrence: None)
  Receive Date: 20110427
  Receipt Date: 20110418
  Transmission Date: 20111010
  Serious: Yes (Other)
  Sender: FDA-Public Use
  Company Number: US-ASTRAZENECA-2011SE22123

PATIENT
  Age: 76 Year
  Sex: Male
  Weight: 104.3 kg

DRUGS (6)
  1. NEXIUM [Suspect]
     Indication: GASTROOESOPHAGEAL REFLUX DISEASE
     Route: 048
     Dates: start: 20090101, end: 20110101
  2. ZOCOR [Concomitant]
  3. BENICAR [Concomitant]
     Indication: BLOOD PRESSURE ABNORMAL
  4. UROXATRAL [Concomitant]
     Indication: PROSTATIC DISORDER
  5. LUMIGAN [Concomitant]
     Indication: GLAUCOMA
  6. COMBIGAN [Concomitant]
     Indication: GLAUCOMA

REACTIONS (2)
  - MYOCARDIAL INFARCTION [None]
  - GASTROOESOPHAGEAL REFLUX DISEASE [None]
